FAERS Safety Report 7345750-2 (Version None)
Quarter: 2011Q1

REPORT INFORMATION
  Report Type: 
  Country: None (occurrence: None)
  Receive Date: 20110308
  Receipt Date: 20110308
  Transmission Date: 20110831
  Serious: Yes (Other)
  Sender: FDA-Public Use
  Company Number: None

PATIENT
  Age: 67 Year
  Sex: Female
  Weight: 61.2356 kg

DRUGS (2)
  1. PREDNIZONE [Concomitant]
  2. ALEVE [Suspect]
     Indication: ARTHRALGIA
     Dosage: ONE PRN JUNE AUG SEPT PO
     Route: 048

REACTIONS (4)
  - SWELLING FACE [None]
  - BURNING SENSATION [None]
  - SCAR [None]
  - PRURITUS [None]
